FAERS Safety Report 5049900-2 (Version None)
Quarter: 2006Q2

REPORT INFORMATION
  Report Type: 
  Country: None (occurrence: None)
  Receive Date: 20060614
  Receipt Date: 20060323
  Transmission Date: 20061013
  Serious: Yes (Other)
  Sender: FDA-Public Use
  Company Number: 441585

PATIENT
  Age: 70 Year
  Sex: Female

DRUGS (1)
  1. BONIVA [Suspect]
     Indication: PROPHYLAXIS
     Dosage: 1 PER MONTH ORAL
     Route: 048
     Dates: start: 20051101

REACTIONS (2)
  - DIARRHOEA [None]
  - GASTROINTESTINAL DISORDER [None]
